FAERS Safety Report 9774552 (Version 1)
Quarter: 2013Q4

REPORT INFORMATION
  Report Type: Spontaneous
  Country: US (occurrence: None)
  Receive Date: 20131219
  Receipt Date: 20131219
  Transmission Date: 20140711
  Serious: Yes (Hospitalization)
  Sender: FDA-Public Use
  Company Number: None

PATIENT
  Age: 61 Year
  Sex: Male
  Weight: 91.17 kg

DRUGS (2)
  1. 5-FLUOROURACIL (5-FU) [Suspect]
  2. MITOMYCIN-C [Suspect]

REACTIONS (4)
  - Tooth abscess [None]
  - Pyrexia [None]
  - Chills [None]
  - Neutrophil count decreased [None]
